FAERS Safety Report 6320698-0 (Version None)
Quarter: 2009Q3

REPORT INFORMATION
  Report Type: 
  Country: None (occurrence: None)
  Receive Date: 20090822
  Receipt Date: 20081126
  Transmission Date: 20100115
  Serious: No
  Sender: FDA-Public Use
  Company Number: US-ABBOTT-08P-163-0490264-00

PATIENT
  Sex: Female

DRUGS (4)
  1. NIASPAN [Suspect]
     Indication: BLOOD TRIGLYCERIDES INCREASED
     Dosage: 500MG AT BEDTIME
     Route: 048
     Dates: start: 20081003, end: 20081101
  2. NIASPAN [Suspect]
     Indication: BLOOD CHOLESTEROL INCREASED
     Dosage: 750MG DAILY AT HOUR OF SLEEP
     Route: 048
     Dates: start: 20081101
  3. ASPIRIN [Concomitant]
     Indication: DRUG USE FOR UNKNOWN INDICATION
     Dosage: TAKES 30 MINUTES PRIOR TO TAKING NIASPAN
  4. UNKNOWN OTHER MEDICATIONS [Concomitant]
     Indication: DRUG USE FOR UNKNOWN INDICATION

REACTIONS (6)
  - FLUSHING [None]
  - HOT FLUSH [None]
  - MIDDLE INSOMNIA [None]
  - PRURITUS [None]
  - SENSORY DISTURBANCE [None]
  - SKIN BURNING SENSATION [None]
